FAERS Safety Report 12096382 (Version 2)
Quarter: 2016Q1

REPORT INFORMATION
  Report Type: Spontaneous
  Country: US (occurrence: US)
  Receive Date: 20160220
  Receipt Date: 20160309
  Transmission Date: 20160526
  Serious: Yes (Hospitalization)
  Sender: FDA-Public Use
  Company Number: US-AUROBINDO-AUR-APL-2016-01607

PATIENT
  Age: 89 Year
  Sex: Male

DRUGS (2)
  1. CLOPIDOGREL [Suspect]
     Active Substance: CLOPIDOGREL BISULFATE
     Indication: ISCHAEMIC CARDIOMYOPATHY
     Route: 065
  2. ASPIRIN. [Suspect]
     Active Substance: ASPIRIN
     Indication: PRODUCT USED FOR UNKNOWN INDICATION
     Route: 065

REACTIONS (6)
  - Colonic haematoma [Recovered/Resolved]
  - Haemorrhoids [Recovered/Resolved]
  - Hypotension [Recovered/Resolved]
  - Rectal haemorrhage [Recovered/Resolved]
  - Urosepsis [Recovered/Resolved]
  - Cachexia [Recovered/Resolved]
